FAERS Safety Report 12428473 (Version 1)
Quarter: 2016Q2

REPORT INFORMATION
  Report Type: Spontaneous
  Country: None (occurrence: None)
  Receive Date: 20160601
  Receipt Date: 20160601
  Transmission Date: 20160815
  Serious: No
  Sender: FDA-Public Use
  Company Number: None

PATIENT
  Age: 50 Year
  Sex: Female
  Weight: 80.74 kg

DRUGS (2)
  1. LEVOTHYROXINE. [Concomitant]
     Active Substance: LEVOTHYROXINE
  2. SCOPOLAMINE PATCH [Suspect]
     Active Substance: SCOPOLAMINE
     Indication: PROCEDURAL NAUSEA
     Route: 061
     Dates: start: 20160525, end: 20160529

REACTIONS (9)
  - Headache [None]
  - Tremor [None]
  - Ventricular extrasystoles [None]
  - Confusional state [None]
  - Dizziness [None]
  - Eye pain [None]
  - Balance disorder [None]
  - Head discomfort [None]
  - Pruritus [None]

NARRATIVE: CASE EVENT DATE: 20160529
